FAERS Safety Report 4668318-5 (Version None)
Quarter: 2005Q2

REPORT INFORMATION
  Report Type: 
  Country: None (occurrence: None)
  Receive Date: 20050523
  Receipt Date: 20050316
  Transmission Date: 20051028
  Serious: Yes (Hospitalization, Other)
  Sender: FDA-Public Use
  Company Number: PHEH2005US03263

PATIENT
  Age: 83 Year
  Sex: Female
  Weight: 73 kg

DRUGS (10)
  1. ZOMETA [Suspect]
     Indication: MULTIPLE MYELOMA
     Dosage: 4 MG EVERY 4 WEEKS
     Dates: start: 20021118, end: 20041108
  2. LEVOTHYROXINE SODIUM [Concomitant]
     Dosage: 0.75 MG, UNK
  3. METOPROLOL [Concomitant]
     Dosage: 50 MG, UNK
  4. M.V.I. [Concomitant]
  5. CELEBREX [Concomitant]
     Dosage: 200 MG, BID
  6. ASPIRIN [Concomitant]
     Dosage: 325 MG, QD
  7. COZAAR [Concomitant]
     Dosage: 100 MG, UNK
  8. MELPHALAN [Concomitant]
     Indication: MULTIPLE MYELOMA
     Dosage: 10 MG/M DAYS 1-4 Q 6 WEEKS
     Dates: start: 20021001, end: 20031206
  9. DEXAMETHASONE [Concomitant]
     Dates: start: 20021201, end: 20030923
  10. PREDNISONE [Concomitant]
     Indication: MULTIPLE MYELOMA
     Dosage: 60 MG/M2 QD DAYS 1-4
     Route: 048

REACTIONS (13)
  - ABSCESS DRAINAGE [None]
  - ASEPTIC NECROSIS BONE [None]
  - BONE DEBRIDEMENT [None]
  - BONE DISORDER [None]
  - HYPERBARIC OXYGEN THERAPY [None]
  - JAW DISORDER [None]
  - MOUTH ULCERATION [None]
  - ORAL SURGERY [None]
  - OSTEONECROSIS [None]
  - PURULENT DISCHARGE [None]
  - SWELLING FACE [None]
  - TOOTH ABSCESS [None]
  - TOOTH EXTRACTION [None]
